FAERS Safety Report 12373251 (Version 2)
Quarter: 2016Q3

REPORT INFORMATION
  Report Type: Not Available
  Country: None (occurrence: US)
  Receive Date: 20160516
  Receipt Date: 20160714
  Transmission Date: 20161109
  Serious: Yes (Disabling)
  Sender: FDA-Public Use
  Company Number: US-AKORN-30289

PATIENT
  Sex: Female

DRUGS (1)
  1. COSOPT PF [Suspect]
     Active Substance: DORZOLAMIDE HYDROCHLORIDE\TIMOLOL MALEATE

REACTIONS (9)
  - Swelling [None]
  - Fear of death [None]
  - Abdominal pain upper [None]
  - Pain [None]
  - Gastrointestinal pain [None]
  - Fall [None]
  - Insomnia [None]
  - Gait disturbance [None]
  - Palpitations [None]
